FAERS Safety Report 10241734 (Version 1)
Quarter: 2014Q2

REPORT INFORMATION
  Report Type: Report from Study
  Country: BR (occurrence: BR)
  Receive Date: 20140617
  Receipt Date: 20140617
  Transmission Date: 20141212
  Serious: Yes (Death, Hospitalization, Other)
  Sender: FDA-Public Use
  Company Number: PHHY2014BR074275

PATIENT
  Sex: Female

DRUGS (22)
  1. DIOVAN [Suspect]
     Indication: CARDIAC DISORDER
     Dosage: 2 DF (90 MG), DAILY
     Route: 048
  2. DIOVAN [Suspect]
     Dosage: 80 MG, UNK
  3. DIOVAN [Suspect]
     Dosage: 160 MG, UNK
  4. DIOVAN [Suspect]
     Dosage: 320 MG, UNK
  5. DIOVAN HCT [Suspect]
     Dosage: UNK UKN, UNK (VALS 160 MG, HYDR 12.5 MG)
  6. DIOVAN HCT [Suspect]
     Dosage: UNK UKN, UNK (VALS 160 MG, HYDR 25 MG)
  7. DIOVAN HCT [Suspect]
     Dosage: UNK UKN, UNK (VALS 80 MG, HYDR 12.5 MG)
  8. DIOVAN AMLO FIX [Suspect]
     Dosage: UNK UKN, UNK (VALS 160 MG, AMLO 10 MG)
  9. DIOVAN AMLO FIX [Suspect]
     Dosage: UNK UKN, UNK (VALS 160 MG, AMLO 5 MG)
  10. DIOVAN AMLO FIX [Suspect]
     Dosage: UNK UKN, UNK (VALS 320 MG, AMLO 10 MG)
  11. DIOVAN AMLO FIX [Suspect]
     Dosage: UNK UKN, UNK (VALS 320 MG, AMLO 5 MG)
  12. DIOVAN AMLO FIX [Suspect]
     Dosage: UNK UKN, UNK (VALS 80 MG, AMLO 5 MG)
  13. ONBREZ [Suspect]
     Dosage: UNK UKN, UNK
  14. CATAFLAM [Suspect]
     Dosage: UNK UKN, UNK
  15. DIOCOMB SI [Suspect]
     Dosage: UNK UKN, UNK (VALS 160 MG, SIMV 20 MG)
  16. DIOCOMB SI [Suspect]
     Dosage: UNK UKN, UNK (VALS 80 MG, SIMV 20 MG)
  17. PLAGREL [Suspect]
     Dosage: UNK UKN, UNK
  18. NICOTINELL [Suspect]
     Dosage: 21 MG, UNK
  19. NICOTINELL [Suspect]
     Dosage: 7 MG, UNK
  20. BENEFIBER [Suspect]
     Dosage: UNK UKN, UNK
  21. CALCIUM ^SANDOZ^ [Suspect]
     Dosage: UNK UKN, UNK
  22. VENORUTON [Suspect]
     Dosage: UNK UKN, UNK

REACTIONS (2)
  - Cardiopulmonary failure [Fatal]
  - Respiratory disorder [Unknown]
